FAERS Safety Report 19137806 (Version 4)
Quarter: 2021Q2

REPORT INFORMATION
  Report Type: Report from Study
  Country: None (occurrence: US)
  Receive Date: 20210415
  Receipt Date: 20210618
  Transmission Date: 20210717
  Serious: Yes (Other)
  Sender: FDA-Public Use
  Company Number: US-ABBVIE-21K-163-3857247-00

PATIENT
  Age: 43 Year
  Sex: Male

DRUGS (2)
  1. HUMIRA [Suspect]
     Active Substance: ADALIMUMAB
     Dosage: CITRATE FREE
     Route: 058
  2. HUMIRA [Suspect]
     Active Substance: ADALIMUMAB
     Indication: PSORIASIS
     Dosage: CITRATE FREE
     Route: 058
     Dates: start: 2016

REACTIONS (8)
  - Seizure [Unknown]
  - Injection site laceration [Not Recovered/Not Resolved]
  - Device issue [Not Recovered/Not Resolved]
  - Psoriasis [Unknown]
  - Injection site haemorrhage [Recovered/Resolved]
  - Injection site injury [Recovered/Resolved]
  - Device issue [Recovered/Resolved]
  - Hypersensitivity [Unknown]

NARRATIVE: CASE EVENT DATE: 2021
